FAERS Safety Report 5939267-7 (Version None)
Quarter: 2008Q4

REPORT INFORMATION
  Report Type: 
  Country: None (occurrence: None)
  Receive Date: 20081103
  Receipt Date: 20081021
  Transmission Date: 20090506
  Serious: Yes (Congenital Anomaly)
  Sender: FDA-Public Use
  Company Number: FI-NOVOPROD-280750

PATIENT
  Sex: Female
  Weight: 4 kg

DRUGS (2)
  1. LEVEMIR [Suspect]
     Dosage: 45 IU, QD
     Route: 064
     Dates: start: 20051001
  2. NOVORAPID [Suspect]
     Dosage: 20 IU, QD
     Route: 064

REACTIONS (3)
  - HYPOGLYCAEMIA [None]
  - PATENT DUCTUS ARTERIOSUS [None]
  - VENTRICULAR SEPTAL DEFECT [None]
